FAERS Safety Report 23406863 (Version 1)
Quarter: 2024Q1

REPORT INFORMATION
  Report Type: Spontaneous
  Country: DE (occurrence: DE)
  Receive Date: 20240116
  Receipt Date: 20240116
  Transmission Date: 20240410
  Serious: Yes (Other)
  Sender: FDA-Public Use
  Company Number: DE-BIOGEN-2024BI01245126

PATIENT
  Age: 61 Year
  Sex: Female
  Weight: 64 kg

DRUGS (1)
  1. TECFIDERA [Suspect]
     Active Substance: DIMETHYL FUMARATE
     Indication: Multiple sclerosis
     Dosage: DAILY DOSE
     Route: 050
     Dates: start: 201910, end: 202302

REACTIONS (1)
  - Breast cancer female [Not Recovered/Not Resolved]

NARRATIVE: CASE EVENT DATE: 20230113
